FAERS Safety Report 7308872-8 (Version None)
Quarter: 2011Q1

REPORT INFORMATION
  Report Type: 
  Country: None (occurrence: None)
  Receive Date: 20110223
  Receipt Date: 20110217
  Transmission Date: 20110831
  Serious: Yes (Other)
  Sender: FDA-Public Use
  Company Number: CN-B.I. PHARMACEUTICALS,INC./RIDGEFIELD-2011-CS-00120CS

PATIENT
  Age: 27 Year
  Sex: Female

DRUGS (2)
  1. MEDICATION FOR COLD [Concomitant]
     Indication: NASOPHARYNGITIS
  2. MOBIC [Suspect]
     Indication: MENINGITIS
     Dosage: 1 TABLET
     Route: 048
     Dates: start: 20110128, end: 20110203

REACTIONS (1)
  - ABORTION [None]
